FAERS Safety Report 8122187-X (Version None)
Quarter: 2012Q1

REPORT INFORMATION
  Report Type: 
  Country: None (occurrence: None)
  Receive Date: 20120208
  Receipt Date: 20120125
  Transmission Date: 20120608
  Serious: Yes (Other)
  Sender: FDA-Public Use
  Company Number: DE-ROCHE-1011820

PATIENT
  Sex: Female

DRUGS (4)
  1. LEVOTHYROXINE SODIUM [Concomitant]
     Indication: THYROID DISORDER
     Route: 048
  2. MUSARIL [Concomitant]
     Indication: TENSION
     Route: 048
  3. BONIVA [Suspect]
     Indication: OSTEOPOROSIS
     Route: 042
  4. UTROGEST [Concomitant]
     Indication: MENOPAUSE
     Route: 048

REACTIONS (4)
  - ANXIETY [None]
  - CHEST PAIN [None]
  - MYALGIA [None]
  - ARTHRALGIA [None]
